FAERS Safety Report 5689301-7 (Version None)
Quarter: 2008Q1

REPORT INFORMATION
  Report Type: 
  Country: None (occurrence: None)
  Receive Date: 20080331
  Receipt Date: 20080325
  Transmission Date: 20080703
  Serious: Yes (Other)
  Sender: FDA-Public Use
  Company Number: US-BOEHRINGER INGELHEIM GMBH, GERMANY-2008-BP-04580RO

PATIENT
  Age: 44 Year
  Sex: Male

DRUGS (13)
  1. OXANDROLONE [Suspect]
     Indication: CACHEXIA
     Dates: start: 19990301, end: 20021201
  2. TESTOSTERONE [Suspect]
     Indication: HYPOGONADISM
     Route: 062
  3. RECOMBINANT HUMAN GROWTH HORMONE [Suspect]
     Route: 058
     Dates: start: 19990301, end: 20021201
  4. ATENOLOL [Concomitant]
     Indication: HYPERTENSION
  5. GEMFIBROZIL [Concomitant]
     Indication: HYPERTRIGLYCERIDAEMIA
  6. GABAPENTIN [Concomitant]
     Indication: NEUROPATHY PERIPHERAL
  7. BUPROPION HCL [Concomitant]
     Indication: DEPRESSION
  8. FLUOXETINE [Concomitant]
     Indication: DEPRESSION
  9. LAMIVUDINE [Concomitant]
     Indication: ANTIRETROVIRAL THERAPY
  10. ABACAVIR [Concomitant]
     Indication: ANTIRETROVIRAL THERAPY
  11. TENOFOVIR [Concomitant]
     Indication: ANTIRETROVIRAL THERAPY
  12. DELAVIRDINE MESYLATE [Concomitant]
     Indication: ANTIRETROVIRAL THERAPY
  13. LOPINAVIR AND RITONAVIR [Concomitant]
     Indication: ANTIRETROVIRAL THERAPY

REACTIONS (3)
  - BLOOD TESTOSTERONE DECREASED [None]
  - ERECTILE DYSFUNCTION [None]
  - SEX HORMONE BINDING GLOBULIN DECREASED [None]
